FAERS Safety Report 5366438-3 (Version None)
Quarter: 2007Q2

REPORT INFORMATION
  Report Type: 
  Country: None (occurrence: None)
  Receive Date: 20070622
  Receipt Date: 20070612
  Transmission Date: 20071010
  Serious: Yes (Other)
  Sender: FDA-Public Use
  Company Number: ES-JNJFOC-20070602802

PATIENT
  Age: 72 Year
  Sex: Female

DRUGS (5)
  1. REMINYL [Suspect]
     Indication: DEMENTIA ALZHEIMER'S TYPE
     Route: 048
  2. MEMANTINE HCL [Concomitant]
     Indication: DEMENTIA ALZHEIMER'S TYPE
     Route: 048
  3. TRILEPTAL [Concomitant]
     Indication: BIPOLAR DISORDER
     Route: 065
  4. TIAPRIZAL [Concomitant]
     Indication: INSOMNIA
     Route: 065
  5. MIRTAZAPINE [Concomitant]
     Indication: INSOMNIA
     Route: 065

REACTIONS (2)
  - HAEMATEMESIS [None]
  - HYPONATRAEMIA [None]
